FAERS Safety Report 8298869-6 (Version None)
Quarter: 2012Q2

REPORT INFORMATION
  Report Type: 
  Country: None (occurrence: None)
  Receive Date: 20120419
  Receipt Date: 20120411
  Transmission Date: 20120825
  Serious: Yes (Other)
  Sender: FDA-Public Use
  Company Number: US-BAYER-2012-035540

PATIENT
  Sex: Female

DRUGS (1)
  1. MIRENA [Suspect]
     Indication: MENORRHAGIA
     Dosage: 20 MCG/24HR, UNK
     Route: 015
     Dates: start: 20120229

REACTIONS (8)
  - GENITAL HAEMORRHAGE [None]
  - FEELING JITTERY [None]
  - ASTHENIA [None]
  - WEIGHT DECREASED [None]
  - MEDICAL DEVICE DISCOMFORT [None]
  - INSOMNIA [None]
  - NIGHT SWEATS [None]
  - HEADACHE [None]
